FAERS Safety Report 11319175 (Version 1)
Quarter: 2015Q3

REPORT INFORMATION
  Report Type: Spontaneous
  Country: US (occurrence: US)
  Receive Date: 20150729
  Receipt Date: 20150729
  Transmission Date: 20151125
  Serious: Yes (Hospitalization)
  Sender: FDA-Public Use
  Company Number: US-ACTELION-A-NJ2015-120991

PATIENT
  Age: 40 Year
  Sex: Female

DRUGS (11)
  1. KLONOPIN [Concomitant]
     Active Substance: CLONAZEPAM
     Dosage: 1 UNK, BID
  2. DILAUDID [Concomitant]
     Active Substance: HYDROMORPHONE HYDROCHLORIDE
  3. REMODULIN [Suspect]
     Active Substance: TREPROSTINIL
     Dosage: 96 NG/KG, PER MIN
     Route: 051
  4. OPSUMIT [Suspect]
     Active Substance: MACITENTAN
     Indication: PULMONARY ARTERIAL HYPERTENSION
     Dosage: 10 MG, QD
     Route: 048
     Dates: start: 20140403
  5. DIGOXIN. [Concomitant]
     Active Substance: DIGOXIN
     Dosage: 1 UNK, QD
  6. NEURONTIN [Concomitant]
     Active Substance: GABAPENTIN
     Dosage: 2 UNK, TID
  7. REMODULIN [Suspect]
     Active Substance: TREPROSTINIL
     Indication: PRODUCT USED FOR UNKNOWN INDICATION
     Dosage: 118 NG/KG, PER MIN
     Route: 051
     Dates: start: 201505
  8. LASIX [Concomitant]
     Active Substance: FUROSEMIDE
     Dosage: 1 UNK, BID
  9. RANITIDINE [Concomitant]
     Active Substance: RANITIDINE\RANITIDINE HYDROCHLORIDE
  10. REMODULIN [Suspect]
     Active Substance: TREPROSTINIL
     Dosage: 100 NG/KG, PER MIN
     Route: 051
  11. REVATIO [Suspect]
     Active Substance: SILDENAFIL CITRATE
     Indication: PRODUCT USED FOR UNKNOWN INDICATION
     Dosage: 20 MG, TID
     Route: 065
     Dates: start: 200902

REACTIONS (2)
  - Pulmonary arterial hypertension [Unknown]
  - Syncope [Unknown]

NARRATIVE: CASE EVENT DATE: 20150708
